FAERS Safety Report 7978130-7 (Version None)
Quarter: 2011Q4

REPORT INFORMATION
  Report Type: 
  Country: None (occurrence: None)
  Receive Date: 20111201
  Receipt Date: 20111114
  Transmission Date: 20120403
  Serious: Yes (Other)
  Sender: FDA-Public Use
  Company Number: 2011SP053295

PATIENT
  Age: 67 Year
  Sex: Male

DRUGS (1)
  1. TEMODAL [Suspect]
     Indication: MALIGNANT GLIOMA
     Dosage: PO
     Route: 048
     Dates: start: 20110914, end: 20111001

REACTIONS (1)
  - STEVENS-JOHNSON SYNDROME [None]
